FAERS Safety Report 9813859 (Version 2)
Quarter: 2014Q1

REPORT INFORMATION
  Report Type: Spontaneous
  Country: US (occurrence: US)
  Receive Date: 20140113
  Receipt Date: 20140113
  Transmission Date: 20141002
  Serious: No
  Sender: FDA-Public Use
  Company Number: US-GILEAD-2010-0031425

PATIENT
  Sex: Male

DRUGS (3)
  1. TRUVADA [Suspect]
     Indication: HIV INFECTION
     Dates: start: 20100816
  2. ISENTRESS [Concomitant]
     Indication: HIV INFECTION
  3. ALLEGRA [Concomitant]
     Indication: HYPERSENSITIVITY

REACTIONS (2)
  - Anger [Unknown]
  - Anxiety [Unknown]
